FAERS Safety Report 8028344-5 (Version None)
Quarter: 2012Q1

REPORT INFORMATION
  Report Type: 
  Country: None (occurrence: None)
  Receive Date: 20120106
  Receipt Date: 20120104
  Transmission Date: 20120608
  Serious: Yes (Disabling)
  Sender: FDA-Public Use
  Company Number: PHHY2011GB60252

PATIENT
  Age: 65 Year
  Sex: Male

DRUGS (4)
  1. TAMSULOSIN HCL [Concomitant]
     Indication: URINARY RETENTION
     Dosage: 400 UG, UNK
     Route: 048
     Dates: start: 20000424
  2. SIMVASTATIN [Suspect]
     Indication: TRANSIENT ISCHAEMIC ATTACK
     Dosage: 40 MG, UNK
     Route: 048
     Dates: start: 20090325, end: 20100729
  3. FINASTERIDE [Concomitant]
     Indication: PROSTATISM
     Dosage: 5 MG, UNK
     Route: 048
     Dates: start: 20060814
  4. ASPIRIN [Concomitant]
     Indication: TRANSIENT ISCHAEMIC ATTACK
     Dosage: 75 MG, UNK
     Route: 048
     Dates: start: 20081112

REACTIONS (5)
  - PARKINSONISM [None]
  - GAIT DISTURBANCE [None]
  - DYSPHAGIA [None]
  - FLAT AFFECT [None]
  - LETHARGY [None]
